FAERS Safety Report 6993873-X (Version None)
Quarter: 2010Q3

REPORT INFORMATION
  Report Type: 
  Country: None (occurrence: None)
  Receive Date: 20100917
  Receipt Date: 20090721
  Transmission Date: 20110219
  Serious: No
  Sender: FDA-Public Use
  Company Number: US-ASTRAZENECA-2007UW12291

PATIENT
  Age: 48 Year
  Sex: Female
  Weight: 96.2 kg

DRUGS (50)
  1. SEROQUEL [Suspect]
     Indication: SLEEP DISORDER
     Route: 048
     Dates: start: 19970101, end: 20050801
  2. SEROQUEL [Suspect]
     Indication: SCHIZOPHRENIA
     Route: 048
     Dates: start: 19970101, end: 20050801
  3. SEROQUEL [Suspect]
     Indication: DEPRESSION
     Route: 048
     Dates: start: 19970101, end: 20050801
  4. SEROQUEL [Suspect]
     Indication: PSYCHOTIC DISORDER
     Route: 048
     Dates: start: 19970101, end: 20050801
  5. SEROQUEL [Suspect]
     Indication: AFFECTIVE DISORDER
     Route: 048
     Dates: start: 19970101, end: 20050801
  6. SEROQUEL [Suspect]
     Route: 048
     Dates: start: 19970101, end: 20050801
  7. SEROQUEL [Suspect]
     Indication: ANXIETY
     Route: 048
     Dates: start: 19970101, end: 20050801
  8. SEROQUEL [Suspect]
     Dosage: STRENGTH - 25 MG, 200 MG, 300 MG, DOSE - 75 - 600 MG DAILY
     Route: 048
     Dates: start: 20030218
  9. SEROQUEL [Suspect]
     Dosage: STRENGTH - 25 MG, 200 MG, 300 MG, DOSE - 75 - 600 MG DAILY
     Route: 048
     Dates: start: 20030218
  10. SEROQUEL [Suspect]
     Dosage: STRENGTH - 25 MG, 200 MG, 300 MG, DOSE - 75 - 600 MG DAILY
     Route: 048
     Dates: start: 20030218
  11. SEROQUEL [Suspect]
     Dosage: STRENGTH - 25 MG, 200 MG, 300 MG, DOSE - 75 - 600 MG DAILY
     Route: 048
     Dates: start: 20030218
  12. SEROQUEL [Suspect]
     Dosage: STRENGTH - 25 MG, 200 MG, 300 MG, DOSE - 75 - 600 MG DAILY
     Route: 048
     Dates: start: 20030218
  13. SEROQUEL [Suspect]
     Dosage: STRENGTH - 25 MG, 200 MG, 300 MG, DOSE - 75 - 600 MG DAILY
     Route: 048
     Dates: start: 20030218
  14. SEROQUEL [Suspect]
     Dosage: STRENGTH - 25 MG, 200 MG, 300 MG, DOSE - 75 - 600 MG DAILY
     Route: 048
     Dates: start: 20030218
  15. RISPERDAL [Concomitant]
     Indication: SCHIZOPHRENIA
  16. RISPERDAL [Concomitant]
     Indication: DEPRESSION
  17. RISPERDAL [Concomitant]
     Indication: PSYCHOTIC DISORDER
  18. RISPERDAL [Concomitant]
     Dosage: STRENGTH - 2 MG, 4 MG, DOSE - 2 - 4 MG DAILY
     Route: 048
     Dates: start: 20020327, end: 20030218
  19. RISPERDAL [Concomitant]
     Dosage: STRENGTH - 2 MG, 4 MG, DOSE - 2 - 4 MG DAILY
     Route: 048
     Dates: start: 20020327, end: 20030218
  20. RISPERDAL [Concomitant]
     Dosage: STRENGTH - 2 MG, 4 MG, DOSE - 2 - 4 MG DAILY
     Route: 048
     Dates: start: 20020327, end: 20030218
  21. ABILIFY [Concomitant]
     Indication: PSYCHOTIC DISORDER
     Route: 048
     Dates: start: 20040910, end: 20060321
  22. ABILIFY [Concomitant]
     Indication: AFFECTIVE DISORDER
     Route: 048
     Dates: start: 20040910, end: 20060321
  23. HALDOL [Concomitant]
     Dates: start: 20060101
  24. WELLBUTRIN [Concomitant]
  25. WELLBUTRIN [Concomitant]
     Route: 048
     Dates: start: 20040101, end: 20060321
  26. ZOLOFT [Concomitant]
     Indication: DEPRESSION
     Dates: start: 20060101
  27. ZOLOFT [Concomitant]
     Route: 048
     Dates: start: 20020327, end: 20030218
  28. BUSPAR [Concomitant]
     Indication: ANXIETY
     Dosage: 100 MG UP TO SIX TIMES PER DAY
     Dates: start: 20050101
  29. BUSPAR [Concomitant]
     Dosage: STRENGTH - 15 MG, 20 MG, DOSE - 45 - 60 MG UP TO SIX TIMES A DAY
     Route: 048
     Dates: start: 20020327
  30. PROZAC [Concomitant]
     Dosage: 20 OR 25 MG, EVENTUALLY DOUBLED
     Dates: start: 19800101
  31. PROZAC [Concomitant]
     Dates: start: 19901127
  32. ATIVAN [Concomitant]
     Indication: ANXIETY
     Dosage: 3 MG DAILY AND AS AN WHEN REQUIRED
     Route: 048
     Dates: start: 20020327
  33. COGENTIN [Concomitant]
     Indication: EXTRAPYRAMIDAL DISORDER
     Dosage: STRENGTH - 0.5 MG, 1 MG, DOSE - 1 - 2 MG DAILY
     Route: 048
     Dates: start: 20020327, end: 20030218
  34. ZYPREXA [Concomitant]
     Dates: end: 20030218
  35. PAXIL [Concomitant]
     Indication: DEPRESSION
     Dosage: STRENGTH - 25 MG, 37.5 MG, DOSE - 25 - 75 MG DAILY
     Route: 048
     Dates: start: 20030218
  36. PAXIL [Concomitant]
     Indication: ANXIETY
     Dosage: STRENGTH - 25 MG, 37.5 MG, DOSE - 25 - 75 MG DAILY
     Route: 048
     Dates: start: 20030218
  37. RESTORIL [Concomitant]
     Dates: start: 20041011
  38. NEXIUM [Concomitant]
     Dates: start: 20041011
  39. GABITRIL [Concomitant]
     Indication: ANXIETY
     Dates: start: 20040910
  40. LISINOPRIL [Concomitant]
     Dosage: STRENGTH - 5 MG, 40 MG, DOSE - 5 - 40 MG DAILY
     Dates: start: 20040910
  41. NEURONTIN [Concomitant]
     Indication: ANXIETY
     Dates: start: 20040910
  42. PROLIXIN [Concomitant]
     Indication: PSYCHOTIC DISORDER
     Dosage: 5 - 20 MG
     Route: 048
     Dates: start: 20020327, end: 20040910
  43. LOVASTATIN [Concomitant]
     Dates: start: 20050831
  44. LONOX [Concomitant]
     Dates: start: 20050831
  45. PROPRANOLOL [Concomitant]
     Dates: start: 20041107
  46. METFORMIN [Concomitant]
     Dates: start: 20041107
  47. CYMBALTA [Concomitant]
     Dates: start: 20080514
  48. INVEGA [Concomitant]
     Dates: start: 20080514
  49. XANAX [Concomitant]
     Dates: start: 20080514
  50. GEODON [Concomitant]
     Dates: start: 20060321

REACTIONS (3)
  - CARDIAC DISORDER [None]
  - OBESITY [None]
  - TYPE 2 DIABETES MELLITUS [None]
